FAERS Safety Report 6575658-1 (Version None)
Quarter: 2010Q1

REPORT INFORMATION
  Report Type: 
  Country: None (occurrence: None)
  Receive Date: 20100209
  Receipt Date: 20100129
  Transmission Date: 20100710
  Serious: Yes (Other)
  Sender: FDA-Public Use
  Company Number: GB-JNJFOC-20100108467

PATIENT
  Sex: Female

DRUGS (3)
  1. STELARA [Suspect]
     Indication: PSORIASIS
     Route: 058
  2. PAROXETINE HCL [Concomitant]
     Indication: DEPRESSION
     Route: 065
  3. ADALAT [Concomitant]
     Indication: HYPERTENSION
     Route: 065

REACTIONS (1)
  - RENAL IMPAIRMENT [None]
